FAERS Safety Report 10866578 (Version 1)
Quarter: 2015Q1

REPORT INFORMATION
  Report Type: Spontaneous
  Country: US (occurrence: US)
  Receive Date: 20150225
  Receipt Date: 20150225
  Transmission Date: 20150721
  Serious: Yes (Hospitalization)
  Sender: FDA-Public Use
  Company Number: US-BEH-2015049066

PATIENT
  Sex: Female
  Weight: 124 kg

DRUGS (24)
  1. SINGULAIR [Concomitant]
     Active Substance: MONTELUKAST SODIUM
  2. GABAPENTIN. [Concomitant]
     Active Substance: GABAPENTIN
  3. CELEBREX [Concomitant]
     Active Substance: CELECOXIB
  4. MULTIVITAMINS WITH MINERALS [Concomitant]
     Active Substance: MINERALS\VITAMINS
  5. CVS VITAMIN B12 [Concomitant]
  6. HIZENTRA [Suspect]
     Active Substance: HUMAN IMMUNOGLOBULIN G
     Indication: IMMUNODEFICIENCY COMMON VARIABLE
     Route: 058
  7. NALTREXONE [Concomitant]
     Active Substance: NALTREXONE
  8. KLOR-CON M20 [Concomitant]
     Active Substance: POTASSIUM CHLORIDE
  9. AZO CRANBERRY [Concomitant]
  10. SEROQUEL [Concomitant]
     Active Substance: QUETIAPINE FUMARATE
  11. VANIQA [Concomitant]
     Active Substance: EFLORNITHINE HYDROCHLORIDE
  12. NASONEX [Concomitant]
     Active Substance: MOMETASONE FUROATE
  13. LAMOTRIGINE. [Concomitant]
     Active Substance: LAMOTRIGINE
  14. OMEGA 3 FISH OIL [Concomitant]
     Active Substance: FISH OIL\OMEGA-3 FATTY ACIDS
  15. EPIPEN [Concomitant]
     Active Substance: EPINEPHRINE
  16. CYMBALTA [Concomitant]
     Active Substance: DULOXETINE HYDROCHLORIDE
  17. VITAMIN D [Concomitant]
     Active Substance: CHOLECALCIFEROL
  18. ACARBOSE. [Concomitant]
     Active Substance: ACARBOSE
  19. OMEPRAZOLE. [Concomitant]
     Active Substance: OMEPRAZOLE
  20. DIPHENHYDRAMINE [Concomitant]
     Active Substance: DIPHENHYDRAMINE
  21. BOTOX [Concomitant]
     Active Substance: ONABOTULINUMTOXINA
  22. NAPROXEN. [Concomitant]
     Active Substance: NAPROXEN
  23. SIMVASTATIN. [Concomitant]
     Active Substance: SIMVASTATIN
  24. IRON [Concomitant]
     Active Substance: IRON

REACTIONS (5)
  - Generalised tonic-clonic seizure [Unknown]
  - Blood glucose decreased [Unknown]
  - Wound [Unknown]
  - Fall [Unknown]
  - Rib fracture [Unknown]
